FAERS Safety Report 4601892-3 (Version None)
Quarter: 2005Q1

REPORT INFORMATION
  Report Type: 
  Country: None (occurrence: None)
  Receive Date: 20050201
  Receipt Date: 20031230
  Transmission Date: 20050727
  Serious: Yes (Life-Threatening, Hospitalization)
  Sender: FDA-Public Use
  Company Number: 200331098BWH

PATIENT
  Age: 38 Year
  Sex: Male
  Weight: 104.3273 kg

DRUGS (3)
  1. AVELOX [Suspect]
     Indication: INFLUENZA LIKE ILLNESS
     Dosage: 400 MG, ONCE, ORAL
     Route: 048
     Dates: start: 20031221
  2. TOPROL-XL [Concomitant]
  3. COZAAR [Concomitant]

REACTIONS (9)
  - ANAPHYLACTIC SHOCK [None]
  - BRADYCARDIA [None]
  - DYSPNOEA [None]
  - ELECTROCARDIOGRAM T WAVE ABNORMAL [None]
  - ERYTHEMA [None]
  - FACE OEDEMA [None]
  - FLUSHING [None]
  - OEDEMA PERIPHERAL [None]
  - PHARYNGOLARYNGEAL PAIN [None]
